FAERS Safety Report 7000080-3 (Version None)
Quarter: 2010Q3

REPORT INFORMATION
  Report Type: 
  Country: None (occurrence: None)
  Receive Date: 20100920
  Receipt Date: 20100910
  Transmission Date: 20110219
  Serious: Yes (Hospitalization)
  Sender: FDA-Public Use
  Company Number: JP-ELI_LILLY_AND_COMPANY-JP201007006567

PATIENT
  Age: 45 Year
  Sex: Female
  Weight: 37.3 kg

DRUGS (16)
  1. PEMETREXED [Suspect]
     Indication: LUNG ADENOCARCINOMA STAGE IV
     Dosage: 600 MG, OTHER
     Route: 042
     Dates: start: 20100217, end: 20100217
  2. CISPLATIN [Concomitant]
     Indication: LUNG ADENOCARCINOMA STAGE IV
     Dosage: 95 MG, OTHER
     Route: 042
     Dates: start: 20100217, end: 20100217
  3. PANVITAN [Concomitant]
     Dosage: 1 G, DAILY (1/D), 0.5 MG/D AS FOLIC ACID
     Route: 048
     Dates: start: 20100210, end: 20100306
  4. HYDROXOCOBALAMINE [Concomitant]
     Dosage: 1 MG, UNK
     Route: 030
     Dates: start: 20100210, end: 20100210
  5. GRANISETRON HYDROCHLORIDE [Concomitant]
     Route: 042
     Dates: start: 20100217, end: 20100217
  6. DEXART [Concomitant]
     Route: 042
     Dates: start: 20100217, end: 20100220
  7. EMEND [Concomitant]
     Route: 048
     Dates: start: 20100217, end: 20100219
  8. DEPAS [Concomitant]
     Indication: ANXIETY DISORDER
     Route: 048
  9. DECADRON [Concomitant]
     Indication: METASTASES TO CENTRAL NERVOUS SYSTEM
     Route: 065
  10. BAKTAR [Concomitant]
     Indication: PROPHYLAXIS
     Route: 048
  11. GASTER D [Concomitant]
     Indication: GASTRIC ULCER
     Route: 048
  12. ARGAMATE [Concomitant]
     Indication: HYPERKALAEMIA
     Route: 048
     Dates: end: 20100223
  13. LOXONIN [Concomitant]
     Indication: CANCER PAIN
     Route: 065
     Dates: end: 20100226
  14. SELBEX [Concomitant]
     Indication: GASTRIC ULCER
     Route: 048
     Dates: end: 20100226
  15. LENDORMIN [Concomitant]
     Indication: INSOMNIA
     Route: 048
  16. MAGNESIUM OXIDE [Concomitant]
     Indication: CONSTIPATION
     Route: 048
     Dates: start: 20100219

REACTIONS (2)
  - HAEMORRHOIDS [None]
  - RECTAL ULCER [None]
